FAERS Safety Report 19924582 (Version 1)
Quarter: 2021Q4

REPORT INFORMATION
  Report Type: Spontaneous
  Country: DE (occurrence: DE)
  Receive Date: 20211006
  Receipt Date: 20211006
  Transmission Date: 20220303
  Serious: Yes (Other)
  Sender: FDA-Public Use
  Company Number: DE-LUPIN PHARMACEUTICALS INC.-2021-18782

PATIENT
  Age: 59 Year
  Sex: Female

DRUGS (3)
  1. METHYLPREDNISOLONE [Suspect]
     Active Substance: METHYLPREDNISOLONE
     Indication: Primary progressive multiple sclerosis
     Dosage: 1000 MILLIGRAM, QD (HIGH DOSE, 3-5 DAYS EVERY 03-MONTH)
     Route: 042
  2. MITOXANTRONE [Suspect]
     Active Substance: MITOXANTRONE HYDROCHLORIDE
     Indication: Primary progressive multiple sclerosis
     Dosage: UNK
     Route: 065
  3. TRETINOIN [Concomitant]
     Active Substance: TRETINOIN
     Indication: Primary progressive multiple sclerosis
     Dosage: 45 MILLIGRAM/SQ. METER, QD (A 30-DAY INDUCTION PHASE WITH 45 MG/M2 FOLLOWED BY 3 CYCLES OF CONSOLIDA
     Route: 048

REACTIONS (1)
  - Drug ineffective [Unknown]
